FAERS Safety Report 6885451-8 (Version None)
Quarter: 2010Q3

REPORT INFORMATION
  Report Type: 
  Country: None (occurrence: None)
  Receive Date: 20100729
  Receipt Date: 20080610
  Transmission Date: 20110219
  Serious: Yes (Other)
  Sender: FDA-Public Use
  Company Number: US-PFIZER INC-2008048545

PATIENT

DRUGS (1)
  1. CELEBREX [Suspect]

REACTIONS (3)
  - BLOOD URINE PRESENT [None]
  - CONTUSION [None]
  - HAEMATOCHEZIA [None]
